FAERS Safety Report 7349543-1 (Version None)
Quarter: 2011Q1

REPORT INFORMATION
  Report Type: 
  Country: None (occurrence: None)
  Receive Date: 20110314
  Receipt Date: 20110214
  Transmission Date: 20110831
  Serious: No
  Sender: FDA-Public Use
  Company Number: US-B.I. PHARMACEUTICALS,INC./RIDGEFIELD-2011-BP-00135BP

PATIENT
  Sex: Male

DRUGS (8)
  1. CARVEDILOL [Concomitant]
     Dosage: 12.5 MG
  2. DIGOXIN [Concomitant]
     Dosage: 12.5 MG
  3. PRADAXA [Suspect]
     Indication: ANTICOAGULANT THERAPY
  4. LISINOPRIL [Concomitant]
     Dosage: 2.5 MG
  5. RANITIDINE [Concomitant]
     Dosage: 300 MG
  6. PRADAXA [Suspect]
     Indication: ATRIAL FIBRILLATION
     Dosage: 150 MG
     Route: 048
  7. SPIRONOLACTONE [Concomitant]
     Dosage: 12.5 MG
  8. LIPITOR [Concomitant]
     Dosage: 40 MG

REACTIONS (2)
  - ABDOMINAL DISCOMFORT [None]
  - FOREIGN BODY [None]
